FAERS Safety Report 6251445-9 (Version None)
Quarter: 2009Q2

REPORT INFORMATION
  Report Type: 
  Country: None (occurrence: None)
  Receive Date: 20090630
  Receipt Date: 20080626
  Transmission Date: 20091009
  Serious: Yes (Death, Hospitalization)
  Sender: FDA-Public Use
  Company Number: DE-BRISTOL-MYERS SQUIBB COMPANY-14233977

PATIENT
  Age: 61 Year
  Sex: Male
  Weight: 68 kg

DRUGS (3)
  1. CETUXIMAB [Suspect]
     Indication: NON-SMALL CELL LUNG CANCER
     Dosage: 2MG/ML FIRST INFUSION ON: 20-DEC-2007 MOST RECENT INFUSION ON: 14-MAY-2008
     Route: 042
     Dates: start: 20071220
  2. CARBOPLATIN [Suspect]
     Indication: NON-SMALL CELL LUNG CANCER
     Dosage: FIRST INFUSION ON: 20-DEC-2007 MOST RECENT INFUSION ON: 22-FEB-2008 AUC5
     Route: 042
     Dates: start: 20071220, end: 20080222
  3. GEMCITABINE [Suspect]
     Indication: NON-SMALL CELL LUNG CANCER
     Dosage: FIRST INFUSION ON: 20-DEC-2007 MOST RECENT INFUSION ON: 29-FEB-2008
     Route: 042
     Dates: start: 20071220, end: 20080229

REACTIONS (4)
  - MUSCULOSKELETAL CHEST PAIN [None]
  - RIB FRACTURE [None]
  - SEPSIS [None]
  - SOFT TISSUE INFECTION [None]
